FAERS Safety Report 9221506 (Version 1)
Quarter: 2013Q2

REPORT INFORMATION
  Report Type: Spontaneous
  Country: US (occurrence: None)
  Receive Date: 20130408
  Receipt Date: 20130408
  Transmission Date: 20140414
  Serious: Yes (Hospitalization)
  Sender: FDA-Public Use
  Company Number: None

PATIENT
  Age: 8 Year
  Sex: Female
  Weight: 48.54 kg

DRUGS (1)
  1. BACTRIM [Suspect]
     Route: 048
     Dates: start: 20130323, end: 20130401

REACTIONS (2)
  - Stevens-Johnson syndrome [None]
  - Chemical injury [None]
